FAERS Safety Report 14517987 (Version 2)
Quarter: 2018Q1

REPORT INFORMATION
  Report Type: Spontaneous
  Country: NO (occurrence: NO)
  Receive Date: 20180212
  Receipt Date: 20180319
  Transmission Date: 20180509
  Serious: Yes (Hospitalization)
  Sender: FDA-Public Use
  Company Number: NO-ALK-ABELLO A/S-2018AA000330

PATIENT

DRUGS (1)
  1. GRAZAX [Suspect]
     Active Substance: PHLEUM PRATENSE POLLEN
     Indication: PRODUCT USED FOR UNKNOWN INDICATION
     Dosage: 75000 SQ-T
     Dates: start: 201411, end: 20170904

REACTIONS (5)
  - Eosinophilic oesophagitis [Unknown]
  - Purpura [Unknown]
  - Skin exfoliation [Unknown]
  - Bronchitis [Unknown]
  - Eosinophilia [Unknown]

NARRATIVE: CASE EVENT DATE: 201706
